FAERS Safety Report 7975901-8 (Version None)
Quarter: 2011Q4

REPORT INFORMATION
  Report Type: 
  Country: None (occurrence: None)
  Receive Date: 20111213
  Receipt Date: 20111006
  Transmission Date: 20120403
  Serious: No
  Sender: FDA-Public Use
  Company Number: US-AMGEN-USASP2011051807

PATIENT
  Age: 56 Year
  Sex: Female

DRUGS (2)
  1. TREXALL [Concomitant]
     Dosage: 1 MG, QWK
     Dates: start: 20100101
  2. ENBREL [Suspect]
     Indication: PSORIASIS
     Dosage: 50 MG, 2 TIMES/WK
     Dates: start: 20110827

REACTIONS (5)
  - SINUS CONGESTION [None]
  - ERYTHEMA [None]
  - HEADACHE [None]
  - SKIN MASS [None]
  - PARANASAL SINUS HYPERSECRETION [None]
